FAERS Safety Report 8218548-0 (Version None)
Quarter: 2012Q1

REPORT INFORMATION
  Report Type: 
  Country: None (occurrence: None)
  Receive Date: 20120319
  Receipt Date: 20120313
  Transmission Date: 20120608
  Serious: Yes (Other)
  Sender: FDA-Public Use
  Company Number: JP-SANOFI-AVENTIS-2012SA004178

PATIENT
  Age: 84 Year
  Sex: Female

DRUGS (5)
  1. JANUVIA [Concomitant]
  2. TELMISARTAN AND HYDROCHLOROTHIAZIDE [Suspect]
     Route: 065
  3. ALISKIREN [Concomitant]
  4. PLAVIX [Suspect]
     Indication: CEREBRAL INFARCTION
     Route: 048
     Dates: start: 20110830
  5. ANGIOTENSIN II ANTAGONISTS [Suspect]
     Route: 065

REACTIONS (1)
  - RHABDOMYOLYSIS [None]
